FAERS Safety Report 19688930 (Version 3)
Quarter: 2022Q2

REPORT INFORMATION
  Report Type: Report from Study
  Country: IT (occurrence: IT)
  Receive Date: 20210812
  Receipt Date: 20220629
  Transmission Date: 20220720
  Serious: Yes (Hospitalization)
  Sender: FDA-Public Use
  Company Number: IT-CELLTRION INC.-2021IT008765

PATIENT

DRUGS (8)
  1. TRASTUZUMAB [Suspect]
     Active Substance: TRASTUZUMAB
     Indication: Breast cancer metastatic
     Dosage: 8 MG/KG, EVERY 3 WEEKS, MOST RECENT DOSE PRIOR TO THE EVENT WAS 13FEB2017
     Route: 042
     Dates: start: 20170119
  2. TRASTUZUMAB [Suspect]
     Active Substance: TRASTUZUMAB
     Indication: Breast cancer
     Dosage: 24 MG/KG EVERY 3 WEEKS [DOSAGE TEXT: 8 MILLIGRAM/KILOGRAM, 3XW (MOST RECENT DOSE PRIOR TO THE EVENT
     Route: 042
     Dates: start: 20170119
  3. PERTUZUMAB [Suspect]
     Active Substance: PERTUZUMAB
     Indication: Breast cancer metastatic
     Dosage: 840 MG, EVERY 3 WEEKS, MOST RECENT DOSE PRIOR TO EVENT : 13FEB2017
     Route: 042
     Dates: start: 20170119
  4. PERTUZUMAB [Suspect]
     Active Substance: PERTUZUMAB
     Indication: Breast cancer
     Dosage: 2520 MG EVERY 3 WEEKS [DOSAGE TEXT: 840 MILLIGRAM, 3XW (MOST RECENT DOSE PRIOR TO EVENT:13/FEB/2017)
     Route: 042
     Dates: start: 20170119
  5. DOCETAXEL [Suspect]
     Active Substance: DOCETAXEL
     Indication: Breast cancer metastatic
     Dosage: 105 MG, EVERY 3 WEEKS, SUBSEQUENT DOSES RECEIVED ON 27MAR2017, 18APR2017
     Route: 042
     Dates: start: 20170119
  6. DOCETAXEL [Suspect]
     Active Substance: DOCETAXEL
     Indication: Breast cancer
     Dosage: DOSE REDUCED
     Route: 042
  7. DOCETAXEL [Suspect]
     Active Substance: DOCETAXEL
     Dosage: 348 MG EVERY 3 WEEKS [DOSAGE TEXT: 116 MILLIGRAM, 3XW (MOST RECENT DOSE RECEIVED ON 27/MAR/2017,18/A
     Route: 042
     Dates: start: 20170119
  8. CHOLECALCIFEROL [Concomitant]
     Active Substance: CHOLECALCIFEROL
     Dosage: ONGOING = CHECKED
     Dates: start: 20170919

REACTIONS (6)
  - Presyncope [Recovered/Resolved]
  - Vascular access site pain [Recovered/Resolved]
  - Paraesthesia [Recovered/Resolved]
  - Paraesthesia [Recovered/Resolved]
  - Breast pain [Recovered/Resolved]
  - Off label use [Unknown]

NARRATIVE: CASE EVENT DATE: 20170418
